FAERS Safety Report 4586297-6 (Version None)
Quarter: 2005Q1

REPORT INFORMATION
  Report Type: 
  Country: None (occurrence: None)
  Receive Date: 20050125
  Receipt Date: 20040929
  Transmission Date: 20050727
  Serious: No
  Sender: FDA-Public Use
  Company Number: USA040979670

PATIENT
  Age: 63 Year
  Sex: Female
  Weight: 49 kg

DRUGS (4)
  1. FORTEO [Suspect]
     Indication: OSTEOPOROSIS
     Dosage: 20 UG/1 DAY
     Dates: start: 20040705
  2. SYNTHROID [Concomitant]
  3. MULTI-VITAMIN [Concomitant]
  4. CALCIUM WITH VITAMIN D [Concomitant]

REACTIONS (2)
  - MUSCLE SPASMS [None]
  - WEIGHT INCREASED [None]
